FAERS Safety Report 21074846 (Version 1)
Quarter: 2022Q3

REPORT INFORMATION
  Report Type: Report from Study
  Country: US (occurrence: US)
  Receive Date: 20220713
  Receipt Date: 20220713
  Transmission Date: 20221027
  Serious: No
  Sender: FDA-Public Use
  Company Number: US-NOVARTISTESTPH-NVSC2022US158737

PATIENT
  Age: 39 Year
  Sex: Female

DRUGS (1)
  1. GILENYA [Suspect]
     Active Substance: FINGOLIMOD HYDROCHLORIDE
     Indication: Multiple sclerosis
     Dosage: 0.5 MG, QD
     Route: 048
     Dates: start: 20220711

REACTIONS (6)
  - Paraesthesia [Recovered/Resolved]
  - Urticaria [Unknown]
  - Papule [Unknown]
  - Anxiety [Recovered/Resolved]
  - Heart rate decreased [Recovered/Resolved]
  - Pruritus [Unknown]

NARRATIVE: CASE EVENT DATE: 20220711
